FAERS Safety Report 6752510-X (Version None)
Quarter: 2010Q2

REPORT INFORMATION
  Report Type: 
  Country: None (occurrence: None)
  Receive Date: 20100601
  Receipt Date: 20100601
  Transmission Date: 20101027
  Serious: Yes (Other)
  Sender: FDA-Public Use
  Company Number: None

PATIENT
  Age: 50 Year
  Sex: Male
  Weight: 74.8435 kg

DRUGS (2)
  1. LEVAQUIN [Suspect]
     Indication: INFECTION
     Dosage: 3 DAYS ONCE A DAY, IV DRIP; 5 DAYS ONCE A DAY PO
     Route: 041
     Dates: start: 20100428, end: 20100430
  2. LEVAQUIN [Suspect]
     Indication: INFECTION
     Dosage: 3 DAYS ONCE A DAY, IV DRIP; 5 DAYS ONCE A DAY PO
     Route: 041
     Dates: start: 20100430, end: 20100505

REACTIONS (2)
  - ARTHRALGIA [None]
  - PAIN IN EXTREMITY [None]
